FAERS Safety Report 9345372 (Version 1)
Quarter: 2013Q2

REPORT INFORMATION
  Report Type: Report from Study
  Country: US (occurrence: US)
  Receive Date: 20130613
  Receipt Date: 20130613
  Transmission Date: 20140414
  Serious: Yes (Other)
  Sender: FDA-Public Use
  Company Number: US-ROCHE-1235820

PATIENT
  Sex: Female

DRUGS (4)
  1. XELODA [Suspect]
     Indication: BREAST CANCER METASTATIC
     Route: 048
     Dates: start: 20130405
  2. XELODA [Suspect]
     Route: 048
  3. NEURONTIN (UNITED STATES) [Concomitant]
     Indication: CONVULSION
  4. TRILEPTAL [Concomitant]
     Indication: CONVULSION
     Dosage: DRUG REPORTED AS TRILEPTIL
     Route: 065

REACTIONS (7)
  - Convulsion [Not Recovered/Not Resolved]
  - Eye irritation [Not Recovered/Not Resolved]
  - Vision blurred [Not Recovered/Not Resolved]
  - Lacrimation increased [Recovering/Resolving]
  - Dry eye [Not Recovered/Not Resolved]
  - Diarrhoea [Not Recovered/Not Resolved]
  - Gastrointestinal disorder [Not Recovered/Not Resolved]
